FAERS Safety Report 24103564 (Version 1)
Quarter: 2024Q3

REPORT INFORMATION
  Report Type: Report from Study
  Country: US (occurrence: None)
  Receive Date: 20240717
  Receipt Date: 20240717
  Transmission Date: 20241017
  Serious: Yes (Other)
  Sender: ASTRAZENECA
  Company Number: 2019SF50663

PATIENT
  Sex: Female

DRUGS (5)
  1. LYNPARZA [Suspect]
     Active Substance: OLAPARIB
     Indication: Ovarian cancer
     Route: 048
     Dates: start: 20190729
  2. METOPROLOL SUCCINATE [Concomitant]
     Active Substance: METOPROLOL SUCCINATE
  3. TUMS [Concomitant]
     Active Substance: CALCIUM CARBONATE
  4. BECLOMETHASONE DIPROPIONATE\CLOTRIMAZOLE [Concomitant]
     Active Substance: BECLOMETHASONE DIPROPIONATE\CLOTRIMAZOLE
  5. SENNA S [Concomitant]
     Active Substance: DOCUSATE SODIUM\SENNA LEAF

REACTIONS (3)
  - Full blood count abnormal [Unknown]
  - Fatigue [Unknown]
  - Palpitations [Unknown]
